FAERS Safety Report 8101640-9 (Version None)
Quarter: 2012Q1

REPORT INFORMATION
  Report Type: 
  Country: None (occurrence: None)
  Receive Date: 20120129
  Receipt Date: 20111011
  Transmission Date: 20120608
  Serious: No
  Sender: FDA-Public Use
  Company Number: US-ABBOTT-11P-163-0863354-00

PATIENT
  Sex: Female
  Weight: 70.37 kg

DRUGS (7)
  1. METHOTREXATE [Concomitant]
     Indication: RHEUMATOID ARTHRITIS
  2. HUMIRA [Suspect]
     Indication: RHEUMATOID ARTHRITIS
     Route: 058
     Dates: start: 20101101
  3. RESTASIS [Concomitant]
     Indication: DRY EYE
  4. NORCO [Concomitant]
     Indication: ARTHRALGIA
  5. PAXIL [Concomitant]
     Indication: DEPRESSION
  6. PREVACID [Concomitant]
     Indication: GASTROOESOPHAGEAL REFLUX DISEASE
  7. PLAQUENIL [Concomitant]
     Indication: RHEUMATOID ARTHRITIS

REACTIONS (2)
  - DECREASED APPETITE [None]
  - WEIGHT DECREASED [None]
